FAERS Safety Report 5836435 (Version 4)
Quarter: 2015Q3

REPORT INFORMATION
  Report Type: Spontaneous
  Country: GB (occurrence: GB)
  Receive Date: 20050713
  Receipt Date: 20150911
  Transmission Date: 20151125
  Serious: Yes (Life-Threatening, Other)
  Sender: FDA-Public Use
  Company Number: GB-GLAXOSMITHKLINE-B0386915A

PATIENT
  Age: 33 Year
  Sex: Female
  Weight: 59 kg

DRUGS (7)
  1. FLIXOTIDE [Suspect]
     Active Substance: FLUTICASONE PROPIONATE
     Indication: ASTHMA
     Dosage: 500 UNK, UNK
     Route: 055
     Dates: start: 1995
  2. SALBUTAMOL [Concomitant]
     Active Substance: ALBUTEROL
     Indication: ASTHMA
     Route: 055
     Dates: start: 1998
  3. VENLAFAXINE [Concomitant]
     Active Substance: VENLAFAXINE HYDROCHLORIDE
     Indication: DEPRESSION
     Dates: start: 2002
  4. SEPTRIN [Concomitant]
     Active Substance: SULFAMETHOXAZOLE\TRIMETHOPRIM
     Indication: BRONCHIECTASIS
     Route: 048
     Dates: start: 200402, end: 200507
  5. COLOMYCIN [Concomitant]
     Active Substance: COLISTIN
     Indication: BRONCHIECTASIS
     Dates: start: 200403, end: 200404
  6. SERETIDE [Suspect]
     Active Substance: FLUTICASONE FUROATE\SALMETEROL XINAFOATE
     Indication: ASTHMA
     Route: 055
     Dates: start: 200001
  7. AMOXYCILLIN [Concomitant]
     Active Substance: AMOXICILLIN
     Indication: BRONCHIECTASIS
     Dates: start: 200207, end: 200403

REACTIONS (13)
  - Pleurisy [Unknown]
  - Pneumonia [Unknown]
  - Malaise [Unknown]
  - Bronchitis chronic [Unknown]
  - Bronchiectasis [Unknown]
  - Blood cortisol decreased [Unknown]
  - Asthenia [Unknown]
  - Adrenocortical insufficiency acute [Recovering/Resolving]
  - Dehydration [Unknown]
  - ACTH stimulation test abnormal [Unknown]
  - Swelling [Unknown]
  - Exposure during pregnancy [Unknown]
  - Weight increased [Unknown]

NARRATIVE: CASE EVENT DATE: 20040421
